FAERS Safety Report 5526318-7 (Version None)
Quarter: 2007Q4

REPORT INFORMATION
  Report Type: 
  Country: None (occurrence: None)
  Receive Date: 20071127
  Receipt Date: 20071115
  Transmission Date: 20080405
  Serious: Yes (Other)
  Sender: FDA-Public Use
  Company Number: US-BAYER-200713782BCC

PATIENT
  Age: 76 Year
  Sex: Male
  Weight: 61 kg

DRUGS (2)
  1. ALKA SELTZER PLUS ORANGE ZEST [Suspect]
     Indication: NASOPHARYNGITIS
     Route: 048
  2. ALKA SELTZER PLUS TABLET [Suspect]
     Indication: NASOPHARYNGITIS
     Route: 048

REACTIONS (2)
  - CARDIAC FAILURE [None]
  - EMPHYSEMA [None]
